FAERS Safety Report 20761913 (Version 1)
Quarter: 2022Q2

REPORT INFORMATION
  Report Type: Report from Study
  Country: FR (occurrence: FR)
  Receive Date: 20220428
  Receipt Date: 20220428
  Transmission Date: 20220721
  Serious: Yes (Life-Threatening, Other)
  Sender: FDA-Public Use
  Company Number: FR-AFSSAPS-DJ20220519

PATIENT
  Age: 60 Year
  Sex: Female
  Weight: 108 kg

DRUGS (13)
  1. MYCOPHENOLATE MOFETIL [Suspect]
     Active Substance: MYCOPHENOLATE MOFETIL
     Indication: Renal transplant
     Dosage: 1500 MILLIGRAM, QD
     Route: 048
     Dates: start: 2018
  2. CASIRIVIMAB\IMDEVIMAB [Suspect]
     Active Substance: CASIRIVIMAB\IMDEVIMAB
     Indication: COVID-19 prophylaxis
     Dosage: 120 MILLIGRAM PER MILLILITRE
     Route: 042
     Dates: start: 20211202, end: 20211202
  3. PREDNISONE [Suspect]
     Active Substance: PREDNISONE
     Indication: Renal transplant
     Dosage: 5 MILLIGRAM, QD
     Route: 048
     Dates: start: 2018
  4. PROGRAF [Suspect]
     Active Substance: TACROLIMUS
     Indication: Renal transplant
     Dosage: 3 MILLIGRAM, QD
     Route: 048
     Dates: start: 2018
  5. COMIRNATY [Suspect]
     Active Substance: TOZINAMERAN
     Indication: COVID-19 immunisation
     Dosage: 1 DOSAGE FORM,D1+D2+D3
     Route: 030
     Dates: start: 20210420, end: 20210806
  6. NOVORAPID [Concomitant]
     Active Substance: INSULIN ASPART
     Dosage: 100 U/ML, }}DEPENDING ON BLOOD GLUCOSE
  7. PANTOPRAZOLE [Concomitant]
     Active Substance: PANTOPRAZOLE
     Dosage: UNK,20 MG }}0-0-1
  8. VICTOZA [Concomitant]
     Active Substance: LIRAGLUTIDE
     Dosage: UNK,6 MG/ML, }}1.8 MG IN THE MORNING
  9. EBASTINE [Concomitant]
     Active Substance: EBASTINE
     Dosage: UNK,5 MG, }}1-0-0
  10. FUROSEMIDE [Concomitant]
     Active Substance: FUROSEMIDE
     Dosage: 20 MG }}125 MG IN THE MORNING
  11. VENLAFAXINE [Concomitant]
     Active Substance: VENLAFAXINE HYDROCHLORIDE
     Dosage: 37.5 MG }}1-0-0
  12. LANTUS [Concomitant]
     Active Substance: INSULIN GLARGINE
     Dosage: UNK,100 U/ML, }}52 IU IN THE EVENING
  13. ATORVASTATIN [Concomitant]
     Active Substance: ATORVASTATIN
     Dosage: UNK,10 MG }}1-0-0

REACTIONS (2)
  - Vaccination failure [Recovering/Resolving]
  - Drug ineffective [Unknown]

NARRATIVE: CASE EVENT DATE: 20220115
